FAERS Safety Report 8019607-8 (Version None)
Quarter: 2012Q1

REPORT INFORMATION
  Report Type: 
  Country: None (occurrence: None)
  Receive Date: 20120103
  Receipt Date: 20111221
  Transmission Date: 20120608
  Serious: Yes (Hospitalization)
  Sender: FDA-Public Use
  Company Number: US-GLAXOSMITHKLINE-A0903209A

PATIENT
  Age: 42 Year
  Sex: Male
  Weight: 92.3 kg

DRUGS (5)
  1. GLUCOPHAGE [Concomitant]
     Dates: end: 20070501
  2. AVANDIA [Suspect]
     Indication: DIABETES MELLITUS
     Dosage: 8MG PER DAY
     Route: 048
     Dates: end: 20070513
  3. INSULIN [Concomitant]
  4. PRANDIN [Concomitant]
     Dates: end: 20070501
  5. ALTACE [Concomitant]

REACTIONS (2)
  - CARDIOVASCULAR DISORDER [None]
  - TRANSIENT ISCHAEMIC ATTACK [None]
